FAERS Safety Report 5301350-7 (Version None)
Quarter: 2007Q2

REPORT INFORMATION
  Report Type: 
  Country: None (occurrence: None)
  Receive Date: 20070418
  Receipt Date: 20070406
  Transmission Date: 20071010
  Serious: Yes (Other)
  Sender: FDA-Public Use
  Company Number: US-PFIZER INC-2007028536

PATIENT
  Sex: Female
  Weight: 65.8 kg

DRUGS (5)
  1. CHANTIX [Suspect]
     Indication: SMOKING CESSATION THERAPY
  2. PAXIL [Concomitant]
  3. LISINOPRIL [Concomitant]
  4. ADVAIR DISKUS 100/50 [Concomitant]
  5. SINGULAIR [Concomitant]

REACTIONS (3)
  - ANOREXIA [None]
  - MYALGIA [None]
  - WEIGHT DECREASED [None]
